FAERS Safety Report 11301034 (Version 1)
Quarter: 2015Q3

REPORT INFORMATION
  Report Type: Spontaneous
  Country: US (occurrence: None)
  Receive Date: 20150722
  Receipt Date: 20150722
  Transmission Date: 20151125
  Serious: Yes (Hospitalization, Other)
  Sender: FDA-Public Use
  Company Number: TPU2015-00356

PATIENT
  Age: 72 Year
  Sex: Female
  Weight: 80.74 kg

DRUGS (8)
  1. LIDOCAINE  PATCH 5% (QUALITEST) (LIDOCAINE PATCH 5%) (5 PERCENT, POULTICE OR PATCH) [Suspect]
     Active Substance: LIDOCAINE
     Indication: PAIN
     Dosage: 3 PLASTER
     Route: 061
     Dates: start: 2013
  2. IRBESARTAN (IRBESARTAN) [Concomitant]
     Active Substance: IRBESARTAN
  3. B-12 TABLET (CYANOCOBALAMIN) [Concomitant]
  4. VICODIN [Concomitant]
     Active Substance: ACETAMINOPHEN\HYDROCODONE BITARTRATE
  5. SYMBICORT (BUDESONIDE W/FORMOTEROL, FUMARATE) [Concomitant]
  6. AMLODIPINE [Concomitant]
     Active Substance: AMLODIPINE BESYLATE
  7. ALBUTEROL (SALBUTAMOL) [Concomitant]
     Active Substance: ALBUTEROL
  8. OXAZEPAM (OXAZEPAM) [Concomitant]
     Active Substance: OXAZEPAM

REACTIONS (3)
  - Sepsis [None]
  - Kidney infection [None]
  - Lymphoma [None]

NARRATIVE: CASE EVENT DATE: 201501
